FAERS Safety Report 4279473-3 (Version None)
Quarter: 2004Q1

REPORT INFORMATION
  Report Type: 
  Country: None (occurrence: None)
  Receive Date: 20040127
  Receipt Date: 20031211
  Transmission Date: 20041129
  Serious: Yes (Hospitalization)
  Sender: FDA-Public Use
  Company Number: JP-GLAXOSMITHKLINE-B0317655A

PATIENT
  Age: 20 Year
  Sex: Female

DRUGS (2)
  1. MODACIN [Suspect]
     Indication: APPENDICITIS
     Dosage: 1G PER DAY
     Route: 042
     Dates: start: 20031022, end: 20031022
  2. NO CONCURRENT MEDICATION [Concomitant]

REACTIONS (6)
  - BODY TEMPERATURE INCREASED [None]
  - HYPERSENSITIVITY [None]
  - HYPOTENSION [None]
  - LOSS OF CONSCIOUSNESS [None]
  - MALAISE [None]
  - SHOCK [None]
